FAERS Safety Report 8127492-9 (Version None)
Quarter: 2012Q1

REPORT INFORMATION
  Report Type: 
  Country: None (occurrence: None)
  Receive Date: 20120210
  Receipt Date: 20120207
  Transmission Date: 20120608
  Serious: Yes (Other)
  Sender: FDA-Public Use
  Company Number: NL-SANOFI-AVENTIS-2012SA008238

PATIENT
  Age: 75 Year
  Sex: Male

DRUGS (3)
  1. ALFUZOSIN HCL [Suspect]
     Route: 048
     Dates: start: 20110216
  2. AVODART [Suspect]
     Route: 048
     Dates: start: 20110216
  3. VESICARE [Suspect]
     Route: 048
     Dates: start: 20110216

REACTIONS (1)
  - EPILEPSY [None]
